FAERS Safety Report 6774025-5 (Version None)
Quarter: 2010Q2

REPORT INFORMATION
  Report Type: 
  Country: None (occurrence: None)
  Receive Date: 20100616
  Receipt Date: 20100616
  Transmission Date: 20101027
  Serious: Yes (Other)
  Sender: FDA-Public Use
  Company Number: None

PATIENT
  Age: 53 Year
  Sex: Female
  Weight: 77.1115 kg

DRUGS (2)
  1. CITALOPRAM HYDROBROMIDE [Suspect]
     Indication: ANXIETY
     Dosage: 1 PILL EACH DAY PO
     Route: 048
     Dates: start: 20100528, end: 20100610
  2. CITALOPRAM HYDROBROMIDE [Suspect]
     Indication: DEPRESSION
     Dosage: 1 PILL EACH DAY PO
     Route: 048
     Dates: start: 20100528, end: 20100610

REACTIONS (6)
  - ABDOMINAL DISCOMFORT [None]
  - DEPRESSION [None]
  - DIARRHOEA [None]
  - DISEASE RECURRENCE [None]
  - NAUSEA [None]
  - PRODUCT SUBSTITUTION ISSUE [None]
